FAERS Safety Report 5425189-7 (Version None)
Quarter: 2007Q3

REPORT INFORMATION
  Report Type: 
  Country: None (occurrence: None)
  Receive Date: 20070824
  Receipt Date: 20070814
  Transmission Date: 20080115
  Serious: Yes (Hospitalization)
  Sender: FDA-Public Use
  Company Number: GB-ROCHE-512666

PATIENT
  Age: 38 Year
  Sex: Female
  Weight: 69.9 kg

DRUGS (5)
  1. XENICAL [Suspect]
     Indication: OBESITY
     Route: 048
     Dates: start: 20070717
  2. ASPIRIN [Concomitant]
     Route: 048
  3. FERROUS SULFATE TAB [Concomitant]
     Route: 048
  4. AMITRIPTYLINE HCL [Concomitant]
     Route: 048
  5. SIMVASTATIN [Concomitant]
     Route: 048

REACTIONS (2)
  - ANGIOPATHY [None]
  - CHEST PAIN [None]
